FAERS Safety Report 7859619-8 (Version None)
Quarter: 2011Q4

REPORT INFORMATION
  Report Type: 
  Country: None (occurrence: None)
  Receive Date: 20111027
  Receipt Date: 20111011
  Transmission Date: 20120403
  Serious: Yes (Other)
  Sender: FDA-Public Use
  Company Number: US-BAYER-2011-062548

PATIENT
  Age: 39 Year
  Sex: Female

DRUGS (6)
  1. FLUTICASONE PROPIONATE [Concomitant]
     Dosage: 0.05 %, UNK
     Route: 045
  2. YAZ [Suspect]
     Dosage: UNK
     Dates: start: 20060201, end: 20100101
  3. PROVIGIL [Concomitant]
     Dosage: 200 MG, UNK
     Route: 048
  4. WELLBUTRIN SR [Concomitant]
     Dosage: 150 MG, QD
     Route: 048
  5. LORATADINE [Concomitant]
     Dosage: 10 MG, UNK
     Route: 048
  6. YASMIN [Suspect]
     Dosage: UNK
     Dates: start: 20060201, end: 20100101

REACTIONS (6)
  - CHOLECYSTITIS ACUTE [None]
  - INJURY [None]
  - EMOTIONAL DISTRESS [None]
  - PAIN [None]
  - GALLBLADDER DISORDER [None]
  - ANXIETY [None]
